FAERS Safety Report 23116952 (Version 1)
Quarter: 2023Q4

REPORT INFORMATION
  Report Type: Spontaneous
  Country: US (occurrence: None)
  Receive Date: 20231027
  Receipt Date: 20231027
  Transmission Date: 20240110
  Serious: Yes (Death)
  Sender: FDA-Public Use
  Company Number: None

PATIENT
  Age: 48 Year
  Sex: Female

DRUGS (4)
  1. SIROLIMUS [Suspect]
     Active Substance: SIROLIMUS
     Route: 048
  2. WARFARIN [Concomitant]
     Active Substance: WARFARIN
     Dates: start: 20230509
  3. SIROLIMUS [Concomitant]
     Active Substance: SIROLIMUS
     Dates: start: 20230706
  4. valgancyclovir 450 [Concomitant]
     Dates: start: 20220825

REACTIONS (1)
  - Death [None]
